FAERS Safety Report 5913893-3 (Version None)
Quarter: 2008Q4

REPORT INFORMATION
  Report Type: 
  Country: None (occurrence: None)
  Receive Date: 20081009
  Receipt Date: 20081002
  Transmission Date: 20090506
  Serious: Yes (Death)
  Sender: FDA-Public Use
  Company Number: B0537985A

PATIENT

DRUGS (1)
  1. SEROXAT [Suspect]
     Dosage: 30MG WEEKLY

REACTIONS (2)
  - DEATH [None]
  - DEPRESSION [None]
